FAERS Safety Report 8966836 (Version 1)
Quarter: 2012Q4

REPORT INFORMATION
  Report Type: 
  Country: BR (occurrence: BR)
  Receive Date: 20121217
  Receipt Date: 20121217
  Transmission Date: 20130627
  Serious: Yes (Other)
  Sender: FDA-Public Use
  Company Number: BR-PFIZER INC-2012315011

PATIENT
  Age: 59 Year
  Sex: Female

DRUGS (2)
  1. LIPITOR [Suspect]
     Indication: HIGH CHOLESTEROL
     Dosage: UNK
     Route: 048
     Dates: start: 201210
  2. CRESTOR [Suspect]
     Indication: HIGH CHOLESTEROL
     Dosage: UNK
     Route: 048
     Dates: start: 200712, end: 201210

REACTIONS (6)
  - Dengue fever [Unknown]
  - Pain [Recovered/Resolved]
  - Rash macular [Recovered/Resolved]
  - Liver disorder [Unknown]
  - Anxiety [Unknown]
  - Drug ineffective [Unknown]
